FAERS Safety Report 5673820-3 (Version None)
Quarter: 2008Q1

REPORT INFORMATION
  Report Type: 
  Country: None (occurrence: None)
  Receive Date: 20080319
  Receipt Date: 20080311
  Transmission Date: 20080703
  Serious: Yes (Disabling, Other)
  Sender: FDA-Public Use
  Company Number: GB-PFIZER INC-2008023189

PATIENT
  Age: 55 Year
  Sex: Female

DRUGS (5)
  1. LYRICA [Suspect]
     Indication: PAIN
     Route: 048
     Dates: start: 20080101, end: 20080222
  2. CANDESARTAN CILEXETIL [Concomitant]
     Route: 048
  3. CO-DYDRAMOL [Concomitant]
     Route: 048
  4. OMEPRAZOLE [Concomitant]
     Route: 048
  5. ROSUVASTATIN [Concomitant]
     Route: 048

REACTIONS (2)
  - DEHYDRATION [None]
  - OEDEMA PERIPHERAL [None]
